FAERS Safety Report 6393428-4 (Version None)
Quarter: 2009Q4

REPORT INFORMATION
  Report Type: 
  Country: None (occurrence: None)
  Receive Date: 20091008
  Receipt Date: 20090925
  Transmission Date: 20100525
  Serious: Yes (Hospitalization, Other)
  Sender: FDA-Public Use
  Company Number: US-BAYER-200914845BCC

PATIENT
  Age: 0 Hour
  Sex: Male
  Weight: 23 kg

DRUGS (1)
  1. NEO-SYNEPHRINE REGULAR STRENGTH DROPS [Suspect]
     Indication: DRUG USE FOR UNKNOWN INDICATION
     Route: 064

REACTIONS (2)
  - PREMATURE BABY [None]
  - RENAL CYST [None]
